FAERS Safety Report 16867909 (Version 1)
Quarter: 2019Q3

REPORT INFORMATION
  Report Type: Spontaneous
  Country: GB (occurrence: GB)
  Receive Date: 20190930
  Receipt Date: 20190930
  Transmission Date: 20191005
  Serious: Yes (Other)
  Sender: FDA-Public Use
  Company Number: GB-MYLANLABS-2019M1090050

PATIENT
  Age: 51 Year
  Sex: Male
  Weight: 88.9 kg

DRUGS (1)
  1. TADALAFIL. [Suspect]
     Active Substance: TADALAFIL
     Indication: SEXUAL DYSFUNCTION
     Dosage: 20 MILLIGRAM
     Route: 048
     Dates: start: 20181014, end: 20181014

REACTIONS (3)
  - Myalgia [Not Recovered/Not Resolved]
  - Drug ineffective [Unknown]
  - Muscular weakness [Not Recovered/Not Resolved]

NARRATIVE: CASE EVENT DATE: 20181015
